FAERS Safety Report 9582905 (Version 1)
Quarter: 2013Q4

REPORT INFORMATION
  Report Type: Spontaneous
  Country: US (occurrence: US)
  Receive Date: 20131002
  Receipt Date: 20131002
  Transmission Date: 20140711
  Serious: No
  Sender: FDA-Public Use
  Company Number: US-AMGEN-USASP2013043311

PATIENT
  Age: 39 Year
  Sex: Male
  Weight: 115.65 kg

DRUGS (4)
  1. ENBREL [Suspect]
     Indication: PRODUCT USED FOR UNKNOWN INDICATION
     Dosage: 50 MG, QWK
     Route: 058
  2. DIFLUNISAL [Concomitant]
     Dosage: 250 MG, UNK
  3. WELLBUTRIN [Concomitant]
     Dosage: 100 MG, UNK
  4. CALCIUM +D                         /00944201/ [Concomitant]
     Dosage: UNK

REACTIONS (1)
  - Diarrhoea [Unknown]
